FAERS Safety Report 16069284 (Version 3)
Quarter: 2019Q2

REPORT INFORMATION
  Report Type: Spontaneous
  Country: FR (occurrence: FR)
  Receive Date: 20190313
  Receipt Date: 20190419
  Transmission Date: 20190711
  Serious: Yes (Life-Threatening, Hospitalization, Other)
  Sender: FDA-Public Use
  Company Number: PHHY2019FR054290

PATIENT
  Age: 68 Year
  Sex: Male

DRUGS (6)
  1. EXJADE [Suspect]
     Active Substance: DEFERASIROX
     Dosage: 910 MG, QD
     Route: 048
     Dates: start: 201802, end: 20180323
  2. EXJADE [Suspect]
     Active Substance: DEFERASIROX
     Dosage: 1440 MG, QD
     Route: 048
     Dates: start: 20180323, end: 20190409
  3. GRANOCYTE [Concomitant]
     Active Substance: LENOGRASTIM
     Indication: MYELODYSPLASTIC SYNDROME
     Dosage: 3 DF OF 13M UI
     Route: 058
     Dates: start: 20180202
  4. EXJADE [Suspect]
     Active Substance: DEFERASIROX
     Indication: HYPERFERRITINAEMIA
     Dosage: 1000 MG, QD
     Route: 048
     Dates: start: 20180116, end: 201802
  5. AUGMENTIN [Concomitant]
     Active Substance: AMOXICILLIN\CLAVULANATE POTASSIUM
     Indication: PRODUCT USED FOR UNKNOWN INDICATION
     Dosage: 3 DF OF 1G
     Route: 048
     Dates: start: 20180323, end: 20180330
  6. EPORATIO [Concomitant]
     Active Substance: ERYTHROPOIETIN
     Indication: MYELODYSPLASTIC SYNDROME
     Dosage: 6000 OT, QW
     Route: 058
     Dates: start: 20180323

REACTIONS (7)
  - Angiodysplasia [Recovering/Resolving]
  - Shock haemorrhagic [Unknown]
  - Haemoglobin decreased [Unknown]
  - Gastrointestinal haemorrhage [Unknown]
  - Urinary tract infection [Unknown]
  - Coronary artery disease [Unknown]
  - Acute kidney injury [Recovered/Resolved]

NARRATIVE: CASE EVENT DATE: 20180409
